FAERS Safety Report 16705636 (Version 1)
Quarter: 2019Q3

REPORT INFORMATION
  Report Type: Spontaneous
  Country: US (occurrence: US)
  Receive Date: 20190628
  Receipt Date: 20190628
  Transmission Date: 20191004
  Serious: No
  Sender: FDA-Public Use
  Company Number: None

PATIENT
  Age: 60 Year
  Sex: Female

DRUGS (1)
  1. TALTZ [Suspect]
     Active Substance: IXEKIZUMAB
     Indication: PSORIASIS
     Route: 058
     Dates: start: 20190603, end: 20190621

REACTIONS (4)
  - Faeces discoloured [None]
  - Abdominal discomfort [None]
  - Peripheral swelling [None]
  - Migraine [None]

NARRATIVE: CASE EVENT DATE: 20190621
